FAERS Safety Report 15216311 (Version 1)
Quarter: 2018Q3

REPORT INFORMATION
  Report Type: Spontaneous
  Country: GB (occurrence: GB)
  Receive Date: 20180730
  Receipt Date: 20180730
  Transmission Date: 20181010
  Serious: Yes (Other)
  Sender: FDA-Public Use
  Company Number: PHHY2018GB056019

PATIENT
  Age: 73 Year
  Sex: Male
  Weight: 150 kg

DRUGS (1)
  1. ENTRESTO [Suspect]
     Active Substance: SACUBITRIL\VALSARTAN
     Indication: CARDIAC FAILURE CHRONIC
     Dosage: 2 DF (2UG/L), QD (24MGS/26MGS)
     Route: 048

REACTIONS (6)
  - Diarrhoea [Recovering/Resolving]
  - Fluid retention [Recovering/Resolving]
  - Dysuria [Recovering/Resolving]
  - Haematuria [Recovering/Resolving]
  - Dyspnoea [Recovering/Resolving]
  - Cardiac failure chronic [Unknown]
